FAERS Safety Report 9879568 (Version 2)
Quarter: 2014Q1

REPORT INFORMATION
  Report Type: Spontaneous
  Country: IT (occurrence: IT)
  Receive Date: 20140206
  Receipt Date: 20140206
  Transmission Date: 20141002
  Serious: Yes (Hospitalization)
  Sender: FDA-Public Use
  Company Number: IT-ACTAVIS-2012-23604

PATIENT
  Age: 64 Year
  Sex: Female

DRUGS (3)
  1. LORAZEPAM (UNKNOWN) [Suspect]
     Indication: INTENTIONAL SELF-INJURY
     Dosage: 6 DF, TOTAL
     Route: 065
     Dates: start: 20130124, end: 20130124
  2. ALPRAZOLAM (UNKNOWN) [Suspect]
     Indication: INTENTIONAL SELF-INJURY
     Dosage: 4 DF, TOTAL
     Route: 048
     Dates: start: 20130124, end: 20130124
  3. ALCOHOL [Concomitant]
     Indication: INTENTIONAL SELF-INJURY
     Dosage: UNK
     Route: 065

REACTIONS (7)
  - Suicide attempt [Recovering/Resolving]
  - Drug abuse [Recovering/Resolving]
  - Intentional drug misuse [Recovering/Resolving]
  - Suicidal ideation [Unknown]
  - Disorientation [Recovering/Resolving]
  - Sopor [Recovering/Resolving]
  - Overdose [Unknown]
